FAERS Safety Report 6127398-0 (Version None)
Quarter: 2009Q1

REPORT INFORMATION
  Report Type: 
  Country: None (occurrence: None)
  Receive Date: 20090323
  Receipt Date: 20090312
  Transmission Date: 20090719
  Serious: Yes (Hospitalization)
  Sender: FDA-Public Use
  Company Number: PHHY2009HU09010

PATIENT
  Age: 72 Year
  Sex: Female

DRUGS (9)
  1. LESCOL XL [Suspect]
     Indication: HYPERCHOLESTEROLAEMIA
     Route: 048
  2. CARDILOPIN [Concomitant]
     Dosage: 5 MG
  3. DIAPREL [Concomitant]
     Dosage: UNK
  4. LIPIDIL [Concomitant]
     Dosage: UNK
  5. TALLITON [Concomitant]
     Dosage: 12.5 MG
  6. PERINDOPRIL ERBUMINE [Concomitant]
  7. METHYLPREDNISOLONE 4MG TAB [Concomitant]
     Dosage: UNK
  8. PENTOXIFYLLINE [Concomitant]
  9. TENAXUM [Concomitant]

REACTIONS (1)
  - BLOOD GLUCOSE INCREASED [None]
